FAERS Safety Report 14594504 (Version 1)
Quarter: 2018Q1

REPORT INFORMATION
  Report Type: Spontaneous
  Country: DE (occurrence: DE)
  Receive Date: 20180302
  Receipt Date: 20180302
  Transmission Date: 20180509
  Serious: Yes (Hospitalization, Other)
  Sender: FDA-Public Use
  Company Number: DE-SA-2018SA046731

PATIENT
  Age: 43 Year
  Sex: Female
  Weight: 92 kg

DRUGS (5)
  1. DOCETAXEL. [Suspect]
     Active Substance: DOCETAXEL
     Route: 065
  2. FENISTIL [Concomitant]
     Active Substance: DIMETHINDENE
  3. RANITIC [Concomitant]
     Active Substance: RANITIDINE HYDROCHLORIDE
  4. DEXAMETHASONE. [Concomitant]
     Active Substance: DEXAMETHASONE
  5. ADRIAMYCIN [Concomitant]
     Active Substance: DOXORUBICIN HYDROCHLORIDE

REACTIONS (3)
  - Pulmonary embolism [Unknown]
  - Tachycardia [Unknown]
  - Cold sweat [Unknown]

NARRATIVE: CASE EVENT DATE: 20170817
